FAERS Safety Report 8199995-2 (Version None)
Quarter: 2012Q1

REPORT INFORMATION
  Report Type: 
  Country: None (occurrence: None)
  Receive Date: 20120312
  Receipt Date: 20120309
  Transmission Date: 20120608
  Serious: Yes (Other)
  Sender: FDA-Public Use
  Company Number: US-PFIZER INC-2012063675

PATIENT
  Sex: Female
  Weight: 88.435 kg

DRUGS (4)
  1. SCOPOLAMINE [Concomitant]
     Indication: UVEITIS
     Dosage: UNK
     Route: 047
  2. PRED FORTE [Concomitant]
     Indication: UVEITIS
     Dosage: UNK
     Route: 047
  3. CHANTIX [Suspect]
     Indication: SMOKING CESSATION THERAPY
     Dosage: UNK
     Route: 048
     Dates: start: 20120228
  4. OFLOXACIN [Concomitant]
     Indication: UVEITIS
     Dosage: UNK
     Route: 047

REACTIONS (5)
  - DRUG INEFFECTIVE [None]
  - STRESS [None]
  - DEPRESSED MOOD [None]
  - ABNORMAL DREAMS [None]
  - ABNORMAL BEHAVIOUR [None]
